FAERS Safety Report 5959651-5 (Version None)
Quarter: 2008Q4

REPORT INFORMATION
  Report Type: 
  Country: None (occurrence: None)
  Receive Date: 20081120
  Receipt Date: 20081111
  Transmission Date: 20090506
  Serious: Yes (Other)
  Sender: FDA-Public Use
  Company Number: US-ELI_LILLY_AND_COMPANY-US200810003703

PATIENT
  Sex: Male
  Weight: 92.063 kg

DRUGS (3)
  1. STRATTERA [Suspect]
     Indication: ATTENTION DEFICIT/HYPERACTIVITY DISORDER
     Dosage: 40 MG, DAILY (1/D)
     Route: 048
     Dates: start: 20080618
  2. STRATTERA [Suspect]
     Dosage: 60 MG, DAILY (1/D)
     Route: 048
     Dates: start: 20080625
  3. STRATTERA [Suspect]
     Dosage: 80 MG, DAILY (1/D)
     Route: 048
     Dates: start: 20081001, end: 20081001

REACTIONS (2)
  - BLOOD CHOLESTEROL INCREASED [None]
  - PANIC ATTACK [None]
